FAERS Safety Report 22271070 (Version 1)
Quarter: 2023Q2

REPORT INFORMATION
  Report Type: Spontaneous
  Country: US (occurrence: US)
  Receive Date: 20230501
  Receipt Date: 20230501
  Transmission Date: 20230721
  Serious: No
  Sender: FDA-Public Use
  Company Number: US-MYLANLABS-2023M1042029

PATIENT
  Sex: Female
  Weight: 58.67 kg

DRUGS (1)
  1. ESTRADIOL [Suspect]
     Active Substance: ESTRADIOL
     Indication: Vulvovaginal dryness
     Dosage: 0.5 GRAM
     Route: 067

REACTIONS (2)
  - Product packaging quantity issue [Unknown]
  - Off label use [Unknown]
